FAERS Safety Report 21810729 (Version 3)
Quarter: 2023Q1

REPORT INFORMATION
  Report Type: Spontaneous
  Country: US (occurrence: US)
  Receive Date: 20230103
  Receipt Date: 20230206
  Transmission Date: 20230417
  Serious: No
  Sender: FDA-Public Use
  Company Number: US-PFIZER INC-202201396226

PATIENT
  Age: 64 Year
  Sex: Female

DRUGS (11)
  1. IBRANCE [Suspect]
     Active Substance: PALBOCICLIB
     Dosage: 1 CAPSULE DAILY FOR 21 DAYS ON, THEN 7 DAYS OFF
     Dates: start: 20221219
  2. CINNAMON [Concomitant]
     Active Substance: CINNAMON
  3. HERBALS\TURMERIC [Concomitant]
     Active Substance: HERBALS\TURMERIC
  4. ADENOSINE [Concomitant]
     Active Substance: ADENOSINE
  5. LETROZOLE [Concomitant]
     Active Substance: LETROZOLE
  6. BYSTOLIC [Concomitant]
     Active Substance: NEBIVOLOL HYDROCHLORIDE
  7. VITAMIN E [Concomitant]
     Active Substance: .ALPHA.-TOCOPHEROL
  8. CALCIUM [Concomitant]
     Active Substance: CALCIUM
  9. HYDROCHLOROTHIAZIDE [Concomitant]
     Active Substance: HYDROCHLOROTHIAZIDE
  10. VITAMIN D3 [Concomitant]
     Active Substance: CHOLECALCIFEROL
     Dosage: 2400/ML LIQUID
  11. ZETIA [Concomitant]
     Active Substance: EZETIMIBE

REACTIONS (10)
  - Blood creatinine increased [Unknown]
  - Fatigue [Unknown]
  - Full blood count decreased [Unknown]
  - Visual impairment [Unknown]
  - Weight increased [Unknown]
  - Dyspnoea exertional [Unknown]
  - Glomerular filtration rate decreased [Unknown]
  - Dyspnoea exertional [Not Recovered/Not Resolved]
  - Myalgia [Not Recovered/Not Resolved]
  - Bone pain [Not Recovered/Not Resolved]

NARRATIVE: CASE EVENT DATE: 20221201
